FAERS Safety Report 7815107-6 (Version None)
Quarter: 2011Q4

REPORT INFORMATION
  Report Type: 
  Country: None (occurrence: None)
  Receive Date: 20111014
  Receipt Date: 20111012
  Transmission Date: 20120403
  Serious: Yes (Life-Threatening, Hospitalization, Disabling, Other)
  Sender: FDA-Public Use
  Company Number: GB-B.I. PHARMACEUTICALS,INC./RIDGEFIELD-2011-UK-01092UK

PATIENT
  Age: 89 Year
  Sex: Male

DRUGS (5)
  1. SIMVASTATIN [Concomitant]
  2. PRADAXA [Suspect]
     Indication: ATRIAL FIBRILLATION
     Dosage: 220 MG
     Route: 048
     Dates: start: 20110923, end: 20111002
  3. RANITIDINE [Concomitant]
  4. NICORANDIL [Concomitant]
  5. ACETAMINOPHEN [Concomitant]

REACTIONS (5)
  - ASPIRATION [None]
  - DYSARTHRIA [None]
  - ISCHAEMIC STROKE [None]
  - HEMIPARESIS [None]
  - VIITH NERVE PARALYSIS [None]
